FAERS Safety Report 6517043-4 (Version None)
Quarter: 2009Q4

REPORT INFORMATION
  Report Type: 
  Country: None (occurrence: None)
  Receive Date: 20091223
  Receipt Date: 20091218
  Transmission Date: 20100525
  Serious: Yes (Other)
  Sender: FDA-Public Use
  Company Number: US-JNJCH-2009029798

PATIENT
  Age: 67 Year
  Sex: Female
  Weight: 59.9 kg

DRUGS (1)
  1. LISTERINE TOTAL CARE ANTICAVITY MOUTHWASH [Suspect]
     Indication: DENTAL DISORDER PROPHYLAXIS
     Dosage: TEXT:ONE CAPFUL TWICE A DAY
     Route: 048
     Dates: start: 20091104, end: 20091106

REACTIONS (2)
  - APPLICATION SITE BURN [None]
  - TONGUE DISORDER [None]
